FAERS Safety Report 7527399-1 (Version None)
Quarter: 2011Q2

REPORT INFORMATION
  Report Type: 
  Country: None (occurrence: None)
  Receive Date: 20110607
  Receipt Date: 20110525
  Transmission Date: 20111010
  Serious: Yes (Hospitalization)
  Sender: FDA-Public Use
  Company Number: DE-JNJFOC-20110503848

PATIENT
  Sex: Female
  Weight: 91 kg

DRUGS (11)
  1. EBRANTIL [Concomitant]
     Indication: HYPERTENSION
     Route: 065
  2. TAPENTADOL [Suspect]
     Route: 048
     Dates: start: 20101027
  3. AMITRIPTYLINE HCL [Concomitant]
  4. TAPENTADOL [Suspect]
     Route: 048
     Dates: start: 20101027
  5. METOPROLOL SUCCINATE [Concomitant]
     Indication: HYPERTENSION
     Route: 065
  6. METAMIZOLE [Concomitant]
     Indication: PAIN
     Route: 065
  7. NSAIDS [Concomitant]
     Indication: PAIN
     Route: 065
  8. TAPENTADOL [Suspect]
     Indication: ARTHRALGIA
     Route: 048
     Dates: end: 20101224
  9. OLMESARTAN MEDOXOMIL AND HYDROCHLOROTHIZIDE [Concomitant]
     Indication: HYPERTENSION
     Route: 065
  10. VESICARE [Concomitant]
     Indication: INCONTINENCE
     Route: 065
  11. TAPENTADOL [Suspect]
     Indication: BACK PAIN
     Route: 048
     Dates: end: 20101224

REACTIONS (1)
  - FALL [None]
